FAERS Safety Report 26042158 (Version 1)
Quarter: 2025Q4

REPORT INFORMATION
  Report Type: Spontaneous
  Country: CN (occurrence: CN)
  Receive Date: 20251113
  Receipt Date: 20251113
  Transmission Date: 20260117
  Serious: Yes (Hospitalization)
  Sender: ALEXION PHARMACEUTICALS
  Company Number: CN-ASTRAZENECA-202511CHN004669CN

PATIENT
  Age: 69 Year
  Sex: Female

DRUGS (2)
  1. CRESTOR [Suspect]
     Active Substance: ROSUVASTATIN CALCIUM
     Indication: Lipids decreased
     Dosage: 10 MILLIGRAM, QD
     Dates: start: 20251022, end: 20251024
  2. BETAHISTINE HYDROCHLORIDE [Suspect]
     Active Substance: BETAHISTINE HYDROCHLORIDE
     Indication: Lipids decreased
     Dosage: 4 MILLIGRAM, TID
     Dates: start: 20251022, end: 20251023

REACTIONS (4)
  - Macule [Recovering/Resolving]
  - Flushing [Unknown]
  - Petechiae [Unknown]
  - Pruritus [Unknown]

NARRATIVE: CASE EVENT DATE: 20251023
